FAERS Safety Report 10962182 (Version 2)
Quarter: 2015Q2

REPORT INFORMATION
  Report Type: Spontaneous
  Country: US (occurrence: US)
  Receive Date: 20150327
  Receipt Date: 20150402
  Transmission Date: 20150821
  Serious: No
  Sender: FDA-Public Use
  Company Number: US-PFIZER INC-2015105944

PATIENT
  Age: 47 Year
  Sex: Female
  Weight: 77 kg

DRUGS (9)
  1. NAPROSYN [Concomitant]
     Active Substance: NAPROXEN
     Indication: ROTATOR CUFF SYNDROME
     Dosage: 500 MG, 2X/DAY
  2. CHANTIX [Suspect]
     Active Substance: VARENICLINE TARTRATE
     Indication: SMOKING CESSATION THERAPY
     Dosage: 1 MG, 2X/DAY
     Route: 048
  3. LEVEMIR [Concomitant]
     Active Substance: INSULIN DETEMIR
     Indication: DIABETES MELLITUS
     Dosage: UNK, DAILY
  4. LITHIUM CARBONATE. [Concomitant]
     Active Substance: LITHIUM CARBONATE
     Indication: BIPOLAR DISORDER
     Dosage: 3 DAYS A WEEK
  5. LEVOTHYROXINE [Concomitant]
     Active Substance: LEVOTHYROXINE
     Indication: THYROID DISORDER
     Dosage: 200 ?G, 4 DAYS/WEEK
  6. LEVOTHYROXINE [Concomitant]
     Active Substance: LEVOTHYROXINE
     Dosage: 225 ?G, 2 DAYS/WEK
  7. BLACK COHOSH [Concomitant]
     Active Substance: BLACK COHOSH
     Dosage: UNK, 1X/DAY
  8. LORATADINE. [Concomitant]
     Active Substance: LORATADINE
     Dosage: 1 LITTLE PILL EVERYDAY
  9. REGULAR INSULIN NOVO NORDISK [Concomitant]
     Indication: DIABETES MELLITUS
     Dosage: UNK

REACTIONS (2)
  - Hyperphagia [Unknown]
  - Abnormal dreams [Unknown]
